FAERS Safety Report 12710100 (Version 2)
Quarter: 2016Q3

REPORT INFORMATION
  Report Type: Spontaneous
  Country: US (occurrence: US)
  Receive Date: 20160902
  Receipt Date: 20160919
  Transmission Date: 20161109
  Serious: No
  Sender: FDA-Public Use
  Company Number: US-GLAXOSMITHKLINE-US2016126554

PATIENT
  Sex: Male
  Weight: 67.98 kg

DRUGS (2)
  1. NUCALA [Suspect]
     Active Substance: MEPOLIZUMAB
     Indication: ASTHMA
     Dosage: UNK, U
     Route: 058
     Dates: start: 20160613, end: 20160709
  2. NUCALA [Suspect]
     Active Substance: MEPOLIZUMAB
     Dosage: UNK, U
     Route: 058
     Dates: start: 20160613, end: 20160709

REACTIONS (1)
  - Muscle spasms [Unknown]
